FAERS Safety Report 7002682-7 (Version None)
Quarter: 2010Q3

REPORT INFORMATION
  Report Type: 
  Country: None (occurrence: None)
  Receive Date: 20100917
  Receipt Date: 20100917
  Transmission Date: 20110219
  Serious: Yes (Death, Hospitalization)
  Sender: FDA-Public Use
  Company Number: None

PATIENT
  Sex: Male
  Weight: 7.3 kg

DRUGS (8)
  1. CYTARABINE [Suspect]
     Dosage: 253 MG
     Dates: end: 20100902
  2. DAUNORUBICIN HCL [Suspect]
     Dosage: 14 MG
     Dates: end: 20100814
  3. DEXAMETHASONE [Suspect]
     Dosage: 30.3 MG
     Dates: end: 20100902
  4. HYDROCORTISONE [Suspect]
     Dosage: 28 MG
     Dates: end: 20100902
  5. L-ASPARAGINASE [Suspect]
     Dosage: 13350 MG
     Dates: end: 20100907
  6. METHOTREXATE [Suspect]
     Dosage: 14 MG
     Dates: end: 20100902
  7. PREDNISONE [Suspect]
     Dosage: 90 MG
     Dates: end: 20100813
  8. VINCRISTINE SULFATE [Suspect]
     Dosage: 1.2 MG
     Dates: end: 20100902

REACTIONS (11)
  - ABDOMINAL COMPARTMENT SYNDROME [None]
  - ABDOMINAL DISTENSION [None]
  - BLOOD CULTURE POSITIVE [None]
  - CANDIDIASIS [None]
  - DIET REFUSAL [None]
  - DUODENAL ULCER [None]
  - DUODENITIS [None]
  - ENTEROCOCCAL INFECTION [None]
  - PNEUMONIA [None]
  - RESPIRATORY DISTRESS [None]
  - VOMITING [None]
